FAERS Safety Report 13910354 (Version 1)
Quarter: 2017Q3

REPORT INFORMATION
  Report Type: Spontaneous
  Country: US (occurrence: None)
  Receive Date: 20170822
  Receipt Date: 20170822
  Transmission Date: 20171127
  Serious: Yes (Hospitalization)
  Sender: FDA-Public Use
  Company Number: None

PATIENT
  Age: 75 Year
  Sex: Female
  Weight: 81.65 kg

DRUGS (19)
  1. ALBUTEROL-IPRATROPIUM [Concomitant]
     Active Substance: ALBUTEROL\IPRATROPIUM
  2. SPIRIVA [Concomitant]
     Active Substance: TIOTROPIUM BROMIDE MONOHYDRATE
  3. LYRICA [Suspect]
     Active Substance: PREGABALIN
     Indication: FIBROMYALGIA
     Route: 048
     Dates: start: 201306, end: 20130701
  4. OXYGEN. [Concomitant]
     Active Substance: OXYGEN
  5. SUVOREXANT. [Concomitant]
     Active Substance: SUVOREXANT
  6. MORPHINE [Concomitant]
     Active Substance: MORPHINE
  7. VITAMIN D3 [Concomitant]
     Active Substance: CHOLECALCIFEROL
  8. DICLOFENAC [Concomitant]
     Active Substance: DICLOFENAC
  9. ADVAIR DISKUS [Concomitant]
     Active Substance: FLUTICASONE PROPIONATE\SALMETEROL XINAFOATE
  10. PROVENTIL [Concomitant]
     Active Substance: ALBUTEROL
  11. HYDROMORPHONE [Concomitant]
     Active Substance: HYDROMORPHONE
  12. POTASSIUM CLORIDE [Concomitant]
  13. TIZANIDINE. [Concomitant]
     Active Substance: TIZANIDINE
  14. ATORVASTATIN [Concomitant]
     Active Substance: ATORVASTATIN
  15. FREESTYLE FREEDOM LIFE [Concomitant]
  16. FUROSEMIDE. [Concomitant]
     Active Substance: FUROSEMIDE
  17. MOVANTIK [Concomitant]
     Active Substance: NALOXEGOL OXALATE
  18. GLUCOSE BLOOD IV TEST STRIPS [Concomitant]
  19. NALOXONE NASAL SPRAY [Concomitant]

REACTIONS (2)
  - Pneumonia aspiration [None]
  - Loss of consciousness [None]

NARRATIVE: CASE EVENT DATE: 20130701
